FAERS Safety Report 23264753 (Version 1)
Quarter: 2023Q4

REPORT INFORMATION
  Report Type: Spontaneous
  Country: FR (occurrence: FR)
  Receive Date: 20231206
  Receipt Date: 20231206
  Transmission Date: 20240109
  Serious: Yes (Hospitalization, Other)
  Sender: FDA-Public Use
  Company Number: None

PATIENT
  Age: 49 Year
  Sex: Male
  Weight: 84 kg

DRUGS (4)
  1. CUBICIN [Suspect]
     Active Substance: DAPTOMYCIN
     Indication: Osteitis
     Dosage: 850 MILLIGRAM, QD
     Route: 042
     Dates: start: 20180528
  2. UNSPECIFIED INGREDIENT [Suspect]
     Active Substance: UNSPECIFIED INGREDIENT
     Indication: Osteitis
     Route: 003
     Dates: start: 20180528
  3. CEFEPIME [Suspect]
     Active Substance: CEFEPIME HYDROCHLORIDE
     Indication: Osteitis
     Dosage: 2 GRAM, Q8H
     Route: 042
     Dates: start: 20180528
  4. TIGECYCLINE [Suspect]
     Active Substance: TIGECYCLINE
     Indication: Osteitis
     Dosage: 50 MILLIGRAM, Q12H
     Route: 042
     Dates: start: 20180528

REACTIONS (1)
  - Acute myocardial infarction [Recovered/Resolved]

NARRATIVE: CASE EVENT DATE: 20180602
